FAERS Safety Report 19413274 (Version 1)
Quarter: 2021Q2

REPORT INFORMATION
  Report Type: Spontaneous
  Country: US (occurrence: US)
  Receive Date: 20210614
  Receipt Date: 20210614
  Transmission Date: 20210717
  Serious: Yes (Other)
  Sender: FDA-Public Use
  Company Number: US-ALKERMES INC.-ALK-2021-003042

PATIENT
  Age: 43 Year
  Sex: Male
  Weight: 77.1 kg

DRUGS (1)
  1. VIVITROL [Suspect]
     Active Substance: NALTREXONE
     Indication: DRUG DEPENDENCE
     Dosage: 380 MILLIGRAM, QMO
     Route: 030

REACTIONS (4)
  - Drug screen positive [Unknown]
  - Coma [Recovered/Resolved]
  - Cardiac disorder [Recovered/Resolved]
  - Drug dependence [Unknown]
